FAERS Safety Report 7065162-9 (Version None)
Quarter: 2010Q4

REPORT INFORMATION
  Report Type: 
  Country: None (occurrence: None)
  Receive Date: 20101027
  Receipt Date: 19941115
  Transmission Date: 20110411
  Serious: Yes (Death, Hospitalization)
  Sender: FDA-Public Use
  Company Number: JP-ROCHE-940940104001

PATIENT
  Age: 64 Year
  Sex: Female
  Weight: 58.5 kg

DRUGS (10)
  1. GANCICLOVIR SODIUM [Suspect]
     Indication: PNEUMONIA CYTOMEGALOVIRAL
     Route: 042
     Dates: start: 19940119, end: 19940129
  2. BACTRIM [Suspect]
     Route: 042
     Dates: start: 19940118, end: 19940119
  3. BACTRIM [Suspect]
     Route: 042
     Dates: start: 19940120, end: 19940129
  4. MODACIN [Suspect]
     Route: 042
     Dates: start: 19940115, end: 19940126
  5. DIFLUCAN [Suspect]
     Route: 042
     Dates: start: 19940118, end: 19940129
  6. MINOCYCLINE HYDROCHLORIDE [Suspect]
     Route: 042
     Dates: start: 19940120, end: 19940126
  7. BAKTAR [Concomitant]
     Route: 048
     Dates: start: 19940111, end: 19940117
  8. SOLU-MEDROL [Concomitant]
     Route: 042
     Dates: start: 19940118, end: 19940127
  9. PREDNISOLONE [Concomitant]
     Indication: POLYARTERITIS NODOSA
     Route: 042
     Dates: start: 19931226, end: 19940129
  10. ENDOXAN [Concomitant]
     Indication: POLYARTERITIS NODOSA
     Route: 048
     Dates: start: 19931126, end: 19940111

REACTIONS (5)
  - BLOOD ALKALINE PHOSPHATASE INCREASED [None]
  - BLOOD LACTATE DEHYDROGENASE INCREASED [None]
  - HYPERKALAEMIA [None]
  - RESPIRATORY FAILURE [None]
  - THROMBOCYTOPENIA [None]
